FAERS Safety Report 7105685-7 (Version None)
Quarter: 2010Q4

REPORT INFORMATION
  Report Type: 
  Country: None (occurrence: None)
  Receive Date: 20101110
  Receipt Date: 20101025
  Transmission Date: 20110411
  Serious: Yes (Hospitalization, Disabling)
  Sender: FDA-Public Use
  Company Number: 2008PV000028

PATIENT
  Age: 64 Year
  Sex: Female
  Weight: 70 kg

DRUGS (8)
  1. DEPOCYT [Suspect]
     Indication: CENTRAL NERVOUS SYSTEM LYMPHOMA
     Dosage: 50 MG; Q3W; INTH
     Route: 037
     Dates: start: 20060328, end: 20060720
  2. METHOTREXATE [Concomitant]
  3. IFOSFAMIDE [Concomitant]
  4. VINCRISTINE [Concomitant]
  5. LEVOTHYROXINE SODIUM [Concomitant]
  6. ESOMEPRAZOLE [Concomitant]
  7. ARA-C [Concomitant]
  8. CYCLOPHOSPHAMIDE [Concomitant]

REACTIONS (4)
  - BACK PAIN [None]
  - CAUDA EQUINA SYNDROME [None]
  - HYPOAESTHESIA [None]
  - URINARY INCONTINENCE [None]
